FAERS Safety Report 22862126 (Version 3)
Quarter: 2023Q4

REPORT INFORMATION
  Report Type: Report from Study
  Country: CN (occurrence: CN)
  Receive Date: 20230824
  Receipt Date: 20231102
  Transmission Date: 20240110
  Serious: Yes (Death, Life-Threatening, Hospitalization)
  Sender: FDA-Public Use
  Company Number: CN-PFIZER INC-202300222279

PATIENT
  Age: 58 Year
  Sex: Female
  Weight: 64 kg

DRUGS (15)
  1. ELRANATAMAB [Suspect]
     Active Substance: ELRANATAMAB
     Indication: Plasma cell myeloma
     Dosage: 76 MG, EVERY WEEK
     Route: 058
     Dates: start: 20230509, end: 20230606
  2. DARATUMUMAB [Suspect]
     Active Substance: DARATUMUMAB
     Indication: Plasma cell myeloma
     Dosage: 1800 MG, EVERY WEEK
     Route: 058
     Dates: start: 20230523, end: 20230606
  3. DEXAMETHASONE [Suspect]
     Active Substance: DEXAMETHASONE
     Indication: Plasma cell myeloma
     Dosage: 20 MG, ONCE (SODIUM PHOSPHATE FOR INJECTION)
     Route: 042
     Dates: start: 20230530, end: 20230530
  4. DEXAMETHASONE [Suspect]
     Active Substance: DEXAMETHASONE
     Dosage: 4.50 MG, ONCE (TABLET)
     Route: 048
     Dates: start: 20230531, end: 20230531
  5. DEXAMETHASONE [Suspect]
     Active Substance: DEXAMETHASONE
     Dosage: 20 MG, ONCE (SODIUM PHOSPHATE FOR INJECTION)
     Route: 042
     Dates: start: 20230606, end: 20230606
  6. DEXAMETHASONE [Suspect]
     Active Substance: DEXAMETHASONE
     Dosage: 4.50 MG, ONCE (TABLET)
     Route: 048
     Dates: start: 20230607, end: 20230607
  7. ACETAMINOPHEN [Suspect]
     Active Substance: ACETAMINOPHEN
     Indication: Plasma cell myeloma
     Dosage: 650 MG, ONCE (TABLET)
     Route: 048
     Dates: start: 20230530, end: 20230530
  8. ACETAMINOPHEN [Suspect]
     Active Substance: ACETAMINOPHEN
     Dosage: 650 MG, ONCE (TABLET)
     Route: 048
     Dates: start: 20230606, end: 20230606
  9. PROMETHAZINE HYDROCHLORIDE [Concomitant]
     Active Substance: PROMETHAZINE HYDROCHLORIDE
     Indication: Plasma cell myeloma
     Dosage: 25 MG, ONCE
     Route: 042
     Dates: start: 20230530, end: 20230530
  10. PROMETHAZINE HYDROCHLORIDE [Concomitant]
     Active Substance: PROMETHAZINE HYDROCHLORIDE
     Dosage: 25 MG, ONCE
     Route: 042
     Dates: start: 20230606, end: 20230606
  11. SULFAMETHOXAZOLE [Concomitant]
     Active Substance: SULFAMETHOXAZOLE
     Indication: Antifungal prophylaxis
     Dosage: 1 TABLET, 3 TIMES PER WEEK
     Route: 048
     Dates: start: 20230530
  12. ACYCLOVIR [Concomitant]
     Active Substance: ACYCLOVIR
     Indication: Antiviral prophylaxis
     Dosage: 200 MG, 2X/DAY
     Route: 048
     Dates: start: 20230530
  13. FLUCONAZOLE [Concomitant]
     Active Substance: FLUCONAZOLE
     Indication: Antifungal prophylaxis
     Dosage: 400 MG, 1X/DAY
     Route: 048
     Dates: start: 20230530
  14. LEVOFLOXACIN [Concomitant]
     Active Substance: LEVOFLOXACIN
     Indication: Antibiotic prophylaxis
     Dosage: 500 MG, 1X/DAY
     Route: 048
     Dates: start: 20230530
  15. ENALAPRIL [Concomitant]
     Active Substance: ENALAPRIL
     Indication: Hypertension
     Dosage: 10 MG, 1X/DAY
     Route: 048
     Dates: start: 2016

REACTIONS (1)
  - Pneumonia [Fatal]

NARRATIVE: CASE EVENT DATE: 20230614
